FAERS Safety Report 8493177-2 (Version None)
Quarter: 2012Q3

REPORT INFORMATION
  Report Type: 
  Country: None (occurrence: None)
  Receive Date: 20120706
  Receipt Date: 20120622
  Transmission Date: 20120928
  Serious: No
  Sender: FDA-Public Use
  Company Number: US-ASTRAZENECA-2012SE42672

PATIENT
  Age: 49 Year
  Sex: Female
  Weight: 45.4 kg

DRUGS (7)
  1. PULMICORT FLEXHALER [Suspect]
     Indication: ASTHMA
     Route: 055
  2. BOTOX [Concomitant]
     Indication: MIGRAINE
  3. SYNTHROID [Concomitant]
     Indication: HYPOTHYROIDISM
  4. IBUPROFEN (ADVIL) [Concomitant]
     Indication: MIGRAINE
  5. FIORASET [Concomitant]
     Indication: MIGRAINE
  6. MAXALT [Concomitant]
     Indication: MIGRAINE
  7. NEXIUM [Suspect]
     Indication: GASTROOESOPHAGEAL REFLUX DISEASE
     Route: 048

REACTIONS (3)
  - DRUG DOSE OMISSION [None]
  - GASTROOESOPHAGEAL REFLUX DISEASE [None]
  - ASTHMA [None]
